FAERS Safety Report 12850892 (Version 1)
Quarter: 2016Q4

REPORT INFORMATION
  Report Type: Spontaneous
  Country: US (occurrence: US)
  Receive Date: 20161015
  Receipt Date: 20161015
  Transmission Date: 20170207
  Serious: No
  Sender: FDA-Public Use
  Company Number: US-AMGEN-USASP2016132445

PATIENT
  Age: 52 Year
  Sex: Male

DRUGS (2)
  1. ENBREL [Suspect]
     Active Substance: ETANERCEPT
     Indication: PRODUCT USED FOR UNKNOWN INDICATION
     Dosage: 50 MG, UNK (AS DIRECTED BY PHYSICIAN)
     Route: 065
     Dates: start: 20160622, end: 2016
  2. ULTRAVATE [Concomitant]
     Active Substance: HALOBETASOL PROPIONATE
     Dosage: UNK (0.05%)

REACTIONS (1)
  - Drug ineffective [Not Recovered/Not Resolved]
